FAERS Safety Report 4600165-2 (Version None)
Quarter: 2005Q1

REPORT INFORMATION
  Report Type: 
  Country: None (occurrence: None)
  Receive Date: 20050303
  Receipt Date: 20050216
  Transmission Date: 20050727
  Serious: Yes (Death, Hospitalization)
  Sender: FDA-Public Use
  Company Number: EWC050242665

PATIENT
  Age: 51 Year
  Sex: Female
  Weight: 68 kg

DRUGS (4)
  1. XIGRIS [Suspect]
     Indication: SEPTIC SHOCK
     Dosage: 24 UG/KG/HR
     Dates: start: 20050207, end: 20050209
  2. NOREPINEPHRINE [Concomitant]
  3. DOBUTAMINE HCL [Concomitant]
  4. LIDOCAINE W/VASOPRESSIN/NOREPINEPHRINE/ [Concomitant]

REACTIONS (9)
  - BLOOD DISORDER [None]
  - BRAIN DEATH [None]
  - CEREBRAL HAEMORRHAGE [None]
  - LUNG INFECTION [None]
  - MULTI-ORGAN DISORDER [None]
  - NERVOUS SYSTEM DISORDER [None]
  - PUPILS UNEQUAL [None]
  - RENAL FAILURE ACUTE [None]
  - THROMBOCYTOPENIA [None]
